FAERS Safety Report 17297410 (Version 3)
Quarter: 2020Q3

REPORT INFORMATION
  Report Type: Spontaneous
  Country: US (occurrence: US)
  Receive Date: 20200122
  Receipt Date: 20200716
  Transmission Date: 20201102
  Serious: Yes (Other)
  Sender: FDA-Public Use
  Company Number: US-GLAXOSMITHKLINE-US2020GSK011059

PATIENT
  Age: 68 Year
  Sex: Female

DRUGS (5)
  1. NEXIUM [Suspect]
     Active Substance: ESOMEPRAZOLE MAGNESIUM
     Indication: PRODUCT USED FOR UNKNOWN INDICATION
     Dosage: 40 MG, QD
     Route: 048
     Dates: start: 20120530, end: 20130330
  2. ESOMEPRAZOLE. [Suspect]
     Active Substance: ESOMEPRAZOLE MAGNESIUM
     Indication: GASTROOESOPHAGEAL REFLUX DISEASE
     Dosage: 40 MG
     Route: 065
     Dates: start: 2016
  3. NEXIUM [Suspect]
     Active Substance: ESOMEPRAZOLE MAGNESIUM
     Indication: GASTROOESOPHAGEAL REFLUX DISEASE
     Dosage: 40 MG
     Route: 065
     Dates: start: 2001, end: 2013
  4. ESOMEPRAZOLE. [Suspect]
     Active Substance: ESOMEPRAZOLE MAGNESIUM
     Indication: PRODUCT USED FOR UNKNOWN INDICATION
     Dosage: 40 MG, QD
     Route: 048
     Dates: start: 20160511, end: 20190617
  5. PREVACID 24 HR [Suspect]
     Active Substance: LANSOPRAZOLE
     Indication: GASTROOESOPHAGEAL REFLUX DISEASE
     Dosage: UNKNOWN, UNKNOWN
     Route: 048
     Dates: start: 20090518, end: 2013

REACTIONS (17)
  - Microalbuminuria [Unknown]
  - Urinary tract disorder [Recovered/Resolved]
  - Mixed incontinence [Unknown]
  - Stress urinary incontinence [Unknown]
  - Renal failure [Unknown]
  - Dysuria [Unknown]
  - Urge incontinence [Unknown]
  - Nephropathy [Unknown]
  - Haematuria [Unknown]
  - Diabetic nephropathy [Unknown]
  - Renal impairment [Unknown]
  - Micturition urgency [Unknown]
  - Chronic kidney disease [Unknown]
  - Pollakiuria [Unknown]
  - Urinary incontinence [Unknown]
  - Chromaturia [Unknown]
  - Urethral disorder [Unknown]

NARRATIVE: CASE EVENT DATE: 20120801
